FAERS Safety Report 7098232-X (Version None)
Quarter: 2010Q4

REPORT INFORMATION
  Report Type: 
  Country: None (occurrence: None)
  Receive Date: 20101112
  Receipt Date: 20091016
  Transmission Date: 20110411
  Serious: No
  Sender: FDA-Public Use
  Company Number: US-KINGPHARMUSA00001-K200901290

PATIENT
  Age: 83 Year
  Sex: Female
  Weight: 48.073 kg

DRUGS (7)
  1. ALTACE [Suspect]
     Indication: HYPERTENSION
     Dosage: 2.5 MG, QOD
     Route: 048
     Dates: start: 20090526, end: 20090801
  2. ALTACE [Suspect]
     Dosage: 2.5 MG, QOD
     Route: 048
     Dates: start: 20090901, end: 20091015
  3. METOPROLOL [Suspect]
     Indication: HYPERTENSION
     Dosage: UNK
     Route: 048
     Dates: start: 20090501, end: 20090101
  4. ASPIRIN [Concomitant]
     Dosage: UNK
  5. SIMVASTATIN [Concomitant]
     Dosage: UNK
  6. VITAMINS [Concomitant]
     Dosage: UNK
  7. FISH OIL [Concomitant]
     Dosage: UNK

REACTIONS (7)
  - DRY EYE [None]
  - EYE IRRITATION [None]
  - EYE PAIN [None]
  - HEADACHE [None]
  - NAUSEA [None]
  - OCULAR HYPERAEMIA [None]
  - PHOTOSENSITIVITY REACTION [None]
